FAERS Safety Report 5089142-8 (Version None)
Quarter: 2006Q3

REPORT INFORMATION
  Report Type: 
  Country: None (occurrence: None)
  Receive Date: 20060822
  Receipt Date: 20060814
  Transmission Date: 20061208
  Serious: Yes (Other)
  Sender: FDA-Public Use
  Company Number: S06-USA-01604-01

PATIENT
  Age: 78 Year
  Sex: Male

DRUGS (9)
  1. NAMENDA [Suspect]
     Indication: DEMENTIA ALZHEIMER'S TYPE
     Dosage: 10 MG BID PO
     Route: 048
     Dates: start: 20051101
  2. CARDIZEM CD [Suspect]
     Dosage: 100 MG QD PO
     Route: 048
     Dates: end: 20060101
  3. DIGOXIN [Suspect]
     Indication: ATRIAL FIBRILLATION
     Dosage: 0.25 MG QD PO
     Route: 048
     Dates: start: 20060101, end: 20060401
  4. DIGOXIN [Suspect]
     Indication: ATRIAL FIBRILLATION
     Dosage: 0.125 MG QD PO
     Route: 048
     Dates: start: 20060401
  5. UROXATRAL [Suspect]
     Indication: BENIGN PROSTATIC HYPERPLASIA
     Dosage: 10 MG QHS PO
     Route: 048
     Dates: start: 20050101
  6. LIPITOR [Concomitant]
  7. ACTOS [Concomitant]
  8. AMARYL [Concomitant]
  9. ADVAIR 500/50 (SALMETEROL, FLUTICASONE) [Concomitant]

REACTIONS (6)
  - BENIGN PROSTATIC HYPERPLASIA [None]
  - CHRONIC OBSTRUCTIVE PULMONARY DISEASE [None]
  - HYPOXIA [None]
  - JOINT SWELLING [None]
  - OEDEMA PERIPHERAL [None]
  - ORTHOSTATIC HYPOTENSION [None]
